FAERS Safety Report 5128629-6 (Version None)
Quarter: 2006Q4

REPORT INFORMATION
  Report Type: 
  Country: None (occurrence: None)
  Receive Date: 20061011
  Receipt Date: 20060927
  Transmission Date: 20070319
  Serious: Yes (Hospitalization)
  Sender: FDA-Public Use
  Company Number: 14876

PATIENT
  Age: 41 Year
  Sex: Male

DRUGS (5)
  1. FLUOROURACIL [Suspect]
     Indication: RECTAL CANCER
     Dosage: 5488 MG ONCE IV
     Route: 042
     Dates: start: 20060828, end: 20060830
  2. IRINOTECAN HCL [Suspect]
     Indication: RECTAL CANCER
     Dosage: 400 MG TOTAL IV
     Route: 042
     Dates: start: 20060522, end: 20060522
  3. LEUCOVORIN CALCIUM [Suspect]
     Indication: RECTAL CANCER
     Dosage: 784 MG ONCE IV
     Route: 042
     Dates: start: 20060828, end: 20060828
  4. OXALIPLATIN [Suspect]
     Indication: RECTAL CANCER
     Dosage: 167 MG ONCE IV
     Route: 042
     Dates: start: 20060828, end: 20060828
  5. CAPECITABINE [Suspect]
     Indication: RECTAL CANCER
     Dosage: 69000 MG TOTAL PO
     Route: 048
     Dates: start: 20060424, end: 20060601

REACTIONS (1)
  - SMALL INTESTINAL OBSTRUCTION [None]
